FAERS Safety Report 7094833-3 (Version None)
Quarter: 2010Q4

REPORT INFORMATION
  Report Type: 
  Country: None (occurrence: None)
  Receive Date: 20101111
  Receipt Date: 20101103
  Transmission Date: 20110411
  Serious: Yes (Hospitalization)
  Sender: FDA-Public Use
  Company Number: US-BIOGENIDEC-2010BI038520

PATIENT
  Age: 1 Month
  Sex: Male
  Weight: 2 kg

DRUGS (1)
  1. TYSABRI [Suspect]
     Indication: DRUG EXPOSURE DURING PREGNANCY
     Route: 064
     Dates: start: 20090127, end: 20100125

REACTIONS (2)
  - CARDIAC MURMUR [None]
  - GASTROINTESTINAL DISORDER [None]
